FAERS Safety Report 24417657 (Version 2)
Quarter: 2024Q4

REPORT INFORMATION
  Report Type: Spontaneous
  Country: FR (occurrence: FR)
  Receive Date: 20241009
  Receipt Date: 20241105
  Transmission Date: 20250115
  Serious: Yes (Life-Threatening, Hospitalization, Other)
  Sender: FRESENIUS KABI
  Company Number: None

PATIENT
  Age: 39 Year
  Sex: Female
  Weight: 64 kg

DRUGS (20)
  1. LIDOCAINE [Suspect]
     Active Substance: LIDOCAINE
     Indication: Spinal anaesthesia
     Dosage: 30 MILLIGRAM?ROUTE OF ADMINISTRATION: SUBCUTANEOUS
     Route: 058
  2. LIDOCAINE [Suspect]
     Active Substance: LIDOCAINE
     Dosage: 30 MILLIGRAM?ROUTE OF ADMINISTRATION: SUBCUTANEOUS
     Route: 058
  3. LIDOCAINE [Suspect]
     Active Substance: LIDOCAINE
     Dosage: 30 MILLIGRAM?ROUTE OF ADMINISTRATION: SUBCUTANEOUS
     Route: 058
  4. LIDOCAINE [Suspect]
     Active Substance: LIDOCAINE
     Dosage: 30 MILLIGRAM?ROUTE OF ADMINISTRATION: SUBCUTANEOUS
     Route: 058
  5. EPHEDRINE [Suspect]
     Active Substance: EPHEDRINE
     Indication: Hypotension
     Dosage: 6 MILLIGRAM?ROA: INTRAVENOUS
  6. EPHEDRINE [Suspect]
     Active Substance: EPHEDRINE
     Dosage: 6 MILLIGRAM?ROA: INTRAVENOUS
  7. EPHEDRINE [Suspect]
     Active Substance: EPHEDRINE
     Dosage: 6 MILLIGRAM?ROA: INTRAVENOUS
  8. EPHEDRINE [Suspect]
     Active Substance: EPHEDRINE
     Dosage: 6 MILLIGRAM?ROA: INTRAVENOUS
  9. NOREPINEPHRINE [Suspect]
     Active Substance: NOREPINEPHRINE\NOREPINEPHRINE BITARTRATE
     Indication: Hypotension
     Dosage: UNK?ROA: INTRAVENOUS
  10. NOREPINEPHRINE [Suspect]
     Active Substance: NOREPINEPHRINE\NOREPINEPHRINE BITARTRATE
     Dosage: UNK?ROA: INTRAVENOUS
  11. NOREPINEPHRINE [Suspect]
     Active Substance: NOREPINEPHRINE\NOREPINEPHRINE BITARTRATE
     Dosage: UNK?ROA: INTRAVENOUS
  12. NOREPINEPHRINE [Suspect]
     Active Substance: NOREPINEPHRINE\NOREPINEPHRINE BITARTRATE
     Dosage: UNK?ROA: INTRAVENOUS
  13. MIDAZOLAM [Suspect]
     Active Substance: MIDAZOLAM
     Indication: Anxiety
     Dosage: 1 MILLIGRAM?ROA: INTRAVENOUS
  14. MIDAZOLAM [Suspect]
     Active Substance: MIDAZOLAM
     Dosage: 1 MILLIGRAM?ROA: INTRAVENOUS
  15. MIDAZOLAM [Suspect]
     Active Substance: MIDAZOLAM
     Dosage: 1 MILLIGRAM?ROA: INTRAVENOUS
  16. MIDAZOLAM [Suspect]
     Active Substance: MIDAZOLAM
     Dosage: 1 MILLIGRAM?ROA: INTRAVENOUS
  17. BUPIVACAINE HYDROCHLORIDE\SODIUM CHLORIDE\SODIUM HYDROXIDE [Suspect]
     Active Substance: BUPIVACAINE HYDROCHLORIDE\SODIUM CHLORIDE\SODIUM HYDROXIDE
     Indication: Spinal anaesthesia
     Dosage: 10 MILLIGRAM?ROA: INTRATHECAL
  18. BUPIVACAINE HYDROCHLORIDE\SODIUM CHLORIDE\SODIUM HYDROXIDE [Suspect]
     Active Substance: BUPIVACAINE HYDROCHLORIDE\SODIUM CHLORIDE\SODIUM HYDROXIDE
     Dosage: 10 MILLIGRAM?ROA: INTRATHECAL
  19. BUPIVACAINE HYDROCHLORIDE\SODIUM CHLORIDE\SODIUM HYDROXIDE [Suspect]
     Active Substance: BUPIVACAINE HYDROCHLORIDE\SODIUM CHLORIDE\SODIUM HYDROXIDE
     Dosage: 10 MILLIGRAM?ROA: INTRATHECAL
  20. BUPIVACAINE HYDROCHLORIDE\SODIUM CHLORIDE\SODIUM HYDROXIDE [Suspect]
     Active Substance: BUPIVACAINE HYDROCHLORIDE\SODIUM CHLORIDE\SODIUM HYDROXIDE
     Dosage: 10 MILLIGRAM?ROA: INTRATHECAL

REACTIONS (6)
  - Ventricular tachycardia [Recovered/Resolved]
  - Dyspnoea [Recovered/Resolved]
  - Headache [Recovered/Resolved]
  - Nausea [Recovered/Resolved]
  - Paraesthesia [Recovered/Resolved]
  - Hypotension [Recovered/Resolved]

NARRATIVE: CASE EVENT DATE: 20240903
